FAERS Safety Report 9255474 (Version 2)
Quarter: 2013Q2

REPORT INFORMATION
  Report Type: Spontaneous
  Country: GB (occurrence: None)
  Receive Date: 20130422
  Receipt Date: 20130424
  Transmission Date: 20140414
  Serious: Yes (Hospitalization, Other)
  Sender: FDA-Public Use
  Company Number: GER/UKI/13/0029111

PATIENT
  Age: 61 Year
  Sex: Female

DRUGS (3)
  1. OMEPRAZOLE (OMEPRAZOLE) [Suspect]
     Indication: PRODUCT USED FOR UNKNOWN INDICATION
     Dosage: 80MG, 1 IN 1 D
  2. LANSOPRAZOLE (LANSOPRAZOLE) [Suspect]
     Indication: DYSPEPSIA
     Dosage: 30MG, 1 IN 1 D)
     Dates: start: 20130213, end: 20130306
  3. LANSOPRAZOLE (LANSOPRAZOLE) [Suspect]
     Indication: DYSPEPSIA
     Dosage: 30MG, 1 IN 1 D)
     Dates: start: 20130213, end: 20130306

REACTIONS (5)
  - Abdominal pain lower [None]
  - Melaena [None]
  - Fatigue [None]
  - Rash [None]
  - Constipation [None]
